FAERS Safety Report 21896470 (Version 6)
Quarter: 2025Q4

REPORT INFORMATION
  Report Type: Report from Study
  Country: US (occurrence: US)
  Receive Date: 20230123
  Receipt Date: 20251114
  Transmission Date: 20260117
  Serious: Yes (Hospitalization)
  Sender: RECORDATI
  Company Number: US-ORPHANEU-2023000254

PATIENT
  Age: 0 Year
  Sex: Female
  Weight: 4.8 kg

DRUGS (13)
  1. CARBAGLU [Suspect]
     Active Substance: CARGLUMIC ACID
     Indication: Propionic acidaemia
     Dosage: 400 MILLIGRAM, BID
     Dates: start: 20221214, end: 202212
  2. CARBAGLU [Suspect]
     Active Substance: CARGLUMIC ACID
     Indication: Urea cycle disorder
     Dosage: 400 MILLIGRAM, BID
     Dates: start: 202212, end: 202303
  3. CARBAGLU [Suspect]
     Active Substance: CARGLUMIC ACID
     Dosage: DOSE DECREASED (TWO TABLETS EVERY MORNING AND ONE AND A HALF TABLETS IN THE EVENING)
     Dates: start: 202303
  4. CARBAGLU [Suspect]
     Active Substance: CARGLUMIC ACID
     Dosage: 700 MG EVERY MORNING, 500 MG EVERY EVENING, BID
  5. CARBAGLU [Suspect]
     Active Substance: CARGLUMIC ACID
     Dosage: DISSOLVE 5 TABLETS (200 MG) IN 2.5 ML OF WATER PER TABLET AND INGEST BY MOUTH IN THE MORNING AND 4 T
     Route: 048
  6. CARBAGLU [Suspect]
     Active Substance: CARGLUMIC ACID
     Dosage: DISSOLVE 5 TABLETS (200 MG) IN 2.5 ML OF WATER PER TABLET AND INGEST BY MOUTH IN THE MORNING AND 4 T
     Route: 048
  7. METRONIDAZOLE BENZOATE [Suspect]
     Active Substance: METRONIDAZOLE BENZOATE
     Indication: Product used for unknown indication
     Dosage: 0.4 MILLILITER, TID (G-TUBE) (POWDER)
     Dates: start: 20230320
  8. LEVOCARNITINE [Concomitant]
     Active Substance: LEVOCARNITINE
     Indication: Vitamin supplementation
     Dosage: 100 MG/ML SOLUTION
     Dates: start: 20220830
  9. LEVOCARNITINE [Concomitant]
     Active Substance: LEVOCARNITINE
     Dosage: 1000 MICROGRAM (100 MG/ML SOLUTION)
     Dates: start: 20221216
  10. NEOMYCIN SULFATE [Concomitant]
     Active Substance: NEOMYCIN SULFATE
     Indication: Product used for unknown indication
     Dosage: 500 MG TABLET
  11. PEPCID COMPLETE [Concomitant]
     Active Substance: CALCIUM CARBONATE\FAMOTIDINE\MAGNESIUM HYDROXIDE
     Indication: Product used for unknown indication
     Dosage: 10-800-165 (UNITS NOT REPORTED) (CHEWABLE TABLET)
  12. PULMICORT TURBUHALER [Concomitant]
     Active Substance: BUDESONIDE
     Indication: Product used for unknown indication
     Dosage: 0.25 MG/2ML AMPUL-NEB
  13. ALBUTEROL SULFATE [Concomitant]
     Active Substance: ALBUTEROL SULFATE
     Indication: Product used for unknown indication
     Dosage: UNK

REACTIONS (10)
  - Blood gases abnormal [Unknown]
  - Dehydration [Unknown]
  - Blood ketone body increased [Unknown]
  - Hyperammonaemia [Recovered/Resolved]
  - Hyperammonaemia [Unknown]
  - Hyperammonaemia [Unknown]
  - Hyperammonaemia [Unknown]
  - Acidosis [Recovered/Resolved]
  - Acidosis [Unknown]
  - Diarrhoea [Unknown]

NARRATIVE: CASE EVENT DATE: 20221231
